FAERS Safety Report 7323625-2 (Version None)
Quarter: 2011Q1

REPORT INFORMATION
  Report Type: 
  Country: None (occurrence: None)
  Receive Date: 20110301
  Receipt Date: 20110222
  Transmission Date: 20110831
  Serious: Yes (Other)
  Sender: FDA-Public Use
  Company Number: US-ROCHE-762201

PATIENT
  Sex: Male

DRUGS (2)
  1. PEGASYS [Suspect]
     Dosage: PRE FILLED SYRINGE
     Route: 065
     Dates: start: 20101119
  2. COPEGUS [Suspect]
     Dosage: DIVIDED DOSES
     Route: 065
     Dates: start: 20101119

REACTIONS (1)
  - HEPATIC LESION [None]
